FAERS Safety Report 12441087 (Version 1)
Quarter: 2016Q2

REPORT INFORMATION
  Report Type: Report from Study
  Country: US (occurrence: US)
  Receive Date: 20160607
  Receipt Date: 20160607
  Transmission Date: 20160815
  Serious: Yes (Other)
  Sender: FDA-Public Use
  Company Number: US-GILEAD-2016-0200913

PATIENT
  Age: 69 Year
  Sex: Male
  Weight: 88.66 kg

DRUGS (1)
  1. AMBRISENTAN [Suspect]
     Active Substance: AMBRISENTAN
     Indication: PRODUCT USED FOR UNKNOWN INDICATION
     Dosage: 5 MG, QD
     Route: 065
     Dates: start: 20160201

REACTIONS (10)
  - Productive cough [Unknown]
  - Dyspnoea [Unknown]
  - Pneumonia [Unknown]
  - Pain [Not Recovered/Not Resolved]
  - Oxygen saturation decreased [Unknown]
  - Bronchitis [Unknown]
  - Weight increased [Unknown]
  - Influenza like illness [Not Recovered/Not Resolved]
  - Pyrexia [Not Recovered/Not Resolved]
  - Feeling abnormal [Unknown]
